FAERS Safety Report 6491735-8 (Version None)
Quarter: 2009Q4

REPORT INFORMATION
  Report Type: 
  Country: None (occurrence: None)
  Receive Date: 20091208
  Receipt Date: 20091124
  Transmission Date: 20100525
  Serious: Yes (Disabling, Other)
  Sender: FDA-Public Use
  Company Number: 2006AL002575

PATIENT
  Age: 82 Year
  Sex: Male

DRUGS (1)
  1. CITALOPRAM HYDROBROMIDE [Suspect]
     Indication: PANIC ATTACK
     Dosage: 10 MG;QD;PO
     Route: 048
     Dates: start: 20060808, end: 20060811

REACTIONS (4)
  - FACIAL PARESIS [None]
  - HALLUCINATION [None]
  - OEDEMA MOUTH [None]
  - TREMOR [None]
